FAERS Safety Report 7876382-5 (Version None)
Quarter: 2011Q4

REPORT INFORMATION
  Report Type: 
  Country: None (occurrence: None)
  Receive Date: 20111031
  Receipt Date: 20111025
  Transmission Date: 20120403
  Serious: Yes (Hospitalization)
  Sender: FDA-Public Use
  Company Number: US-ABBOTT-11P-163-0856652-00

PATIENT
  Sex: Male
  Weight: 95.34 kg

DRUGS (2)
  1. HUMIRA [Suspect]
     Indication: RHEUMATOID ARTHRITIS
     Dates: start: 20110201, end: 20110701
  2. PREDNISONE [Concomitant]
     Indication: PRODUCT USED FOR UNKNOWN INDICATION

REACTIONS (15)
  - KLEBSIELLA SEPSIS [None]
  - PAIN [None]
  - CHROMATURIA [None]
  - ARTHRALGIA [None]
  - COLD SWEAT [None]
  - PAIN IN EXTREMITY [None]
  - LEUKOCYTOSIS [None]
  - HYPONATRAEMIA [None]
  - HEAD INJURY [None]
  - FAECAL INCONTINENCE [None]
  - FEELING COLD [None]
  - OEDEMA PERIPHERAL [None]
  - HYPOTENSION [None]
  - SYNCOPE [None]
  - ASTHENIA [None]
